FAERS Safety Report 9916553 (Version 3)
Quarter: 2014Q1

REPORT INFORMATION
  Report Type: Spontaneous
  Country: JP (occurrence: JP)
  Receive Date: 20140221
  Receipt Date: 20140313
  Transmission Date: 20141002
  Serious: Yes (Death)
  Sender: FDA-Public Use
  Company Number: PHHY2014JP008354

PATIENT
  Age: 92 Year
  Sex: Female

DRUGS (4)
  1. EXELON PATCH [Suspect]
     Indication: DEMENTIA ALZHEIMER^S TYPE
     Dosage: 4.5 MG,  DAILY
     Route: 062
  2. EXELON PATCH [Suspect]
     Dosage: 9 MG, DAILY
     Route: 062
     Dates: start: 20131023, end: 20140108
  3. MICARDIS [Concomitant]
     Dosage: 80 MG, DAILY
     Route: 048
     Dates: start: 20131023, end: 20140108
  4. TRAZENTA [Concomitant]
     Dosage: 5 MG, UNK
     Route: 048
     Dates: start: 20131023, end: 20140108

REACTIONS (1)
  - Asthenia [Fatal]
